FAERS Safety Report 16297036 (Version 1)
Quarter: 2019Q2

REPORT INFORMATION
  Report Type: Spontaneous
  Country: IT (occurrence: IT)
  Receive Date: 20190510
  Receipt Date: 20190510
  Transmission Date: 20190711
  Serious: Yes (Other)
  Sender: FDA-Public Use
  Company Number: PHHY2019IT101290

PATIENT
  Age: 26 Year
  Sex: Female

DRUGS (2)
  1. CLOBETASOL PROPIONATE. [Suspect]
     Active Substance: CLOBETASOL PROPIONATE
     Indication: PSORIASIS
     Dosage: 100 G, TUBE OF CREAM FOR EVERY TWO WEEKS
     Route: 061
  2. CYCLOSPORINE. [Concomitant]
     Active Substance: CYCLOSPORINE
     Indication: PSORIASIS
     Route: 048

REACTIONS (12)
  - Osteopenia [Unknown]
  - Intentional product misuse [Unknown]
  - Central obesity [Unknown]
  - Cushingoid [Unknown]
  - Skin striae [Unknown]
  - Elastosis perforans [Unknown]
  - Ecchymosis [Unknown]
  - Skin atrophy [Unknown]
  - Cushing^s syndrome [Recovered/Resolved]
  - Abdominal fat apron [Unknown]
  - Arthralgia [Unknown]
  - Lipohypertrophy [Unknown]
